FAERS Safety Report 5065042-4 (Version None)
Quarter: 2006Q3

REPORT INFORMATION
  Report Type: 
  Country: None (occurrence: None)
  Receive Date: 20060706
  Receipt Date: 20060517
  Transmission Date: 20061208
  Serious: No
  Sender: FDA-Public Use
  Company Number: 200613297BWH

PATIENT
  Age: 52 Year
  Sex: Male

DRUGS (1)
  1. LEVITRA [Suspect]
     Indication: ERECTILE DYSFUNCTION
     Dosage: 6.7 MG, ONCE, ORAL
     Route: 048
     Dates: start: 20060516

REACTIONS (5)
  - DYSPNOEA [None]
  - ERYTHEMA [None]
  - LOCAL SWELLING [None]
  - NASAL CONGESTION [None]
  - NASAL DISORDER [None]
